FAERS Safety Report 9109160 (Version 2)
Quarter: 2013Q1

REPORT INFORMATION
  Report Type: Spontaneous
  Country: US (occurrence: US)
  Receive Date: 20130222
  Receipt Date: 20130314
  Transmission Date: 20140127
  Serious: Yes (Death, Other)
  Sender: FDA-Public Use
  Company Number: US-TEVA-387750USA

PATIENT
  Sex: Male

DRUGS (2)
  1. ACTIQ [Suspect]
     Indication: BREAKTHROUGH PAIN
     Route: 048
     Dates: start: 20130131, end: 20130131
  2. MORPHINE SULFATE [Suspect]
     Route: 048

REACTIONS (3)
  - Colon cancer [Fatal]
  - Drug dispensing error [Recovered/Resolved]
  - Medication error [Recovered/Resolved]
